FAERS Safety Report 17675725 (Version 1)
Quarter: 2020Q2

REPORT INFORMATION
  Report Type: Spontaneous
  Country: US (occurrence: US)
  Receive Date: 20200416
  Receipt Date: 20200416
  Transmission Date: 20200714
  Serious: Yes (Other)
  Sender: FDA-Public Use
  Company Number: US-CELGENEUS-USA-20200403069

PATIENT
  Age: 38 Year
  Sex: Female

DRUGS (3)
  1. USTEKINUMAB [Concomitant]
     Active Substance: USTEKINUMAB
     Indication: PITYRIASIS RUBRA PILARIS
     Dosage: 60 MILLIGRAM
     Route: 065
  2. OTEZLA [Suspect]
     Active Substance: APREMILAST
     Indication: PRODUCT USED FOR UNKNOWN INDICATION
     Route: 048
  3. USTEKINUMAB [Concomitant]
     Active Substance: USTEKINUMAB
     Dosage: 20 MILLIGRAM
     Route: 065

REACTIONS (1)
  - Drug reaction with eosinophilia and systemic symptoms [Recovering/Resolving]
